FAERS Safety Report 6841294-2 (Version None)
Quarter: 2010Q3

REPORT INFORMATION
  Report Type: 
  Country: None (occurrence: None)
  Receive Date: 20100714
  Receipt Date: 20070910
  Transmission Date: 20110219
  Serious: No
  Sender: FDA-Public Use
  Company Number: US-PFIZER INC-2007055225

PATIENT
  Sex: Female
  Weight: 61.2 kg

DRUGS (2)
  1. CHANTIX [Suspect]
     Indication: SMOKING CESSATION THERAPY
     Dates: start: 20070619
  2. FLUOXETINE HYDROCHLORIDE [Concomitant]

REACTIONS (9)
  - ABNORMAL DREAMS [None]
  - DRUG INTOLERANCE [None]
  - FATIGUE [None]
  - HEADACHE [None]
  - LETHARGY [None]
  - MALAISE [None]
  - NAUSEA [None]
  - THERAPEUTIC RESPONSE UNEXPECTED [None]
  - TREMOR [None]
